FAERS Safety Report 7083545-8 (Version None)
Quarter: 2010Q4

REPORT INFORMATION
  Report Type: 
  Country: None (occurrence: None)
  Receive Date: 20101104
  Receipt Date: 20101026
  Transmission Date: 20110411
  Serious: Yes (Hospitalization, Disabling)
  Sender: FDA-Public Use
  Company Number: US-ROCHE-729658

PATIENT
  Sex: Male
  Weight: 124.7 kg

DRUGS (10)
  1. AVASTIN [Suspect]
     Indication: GLIOBLASTOMA MULTIFORME
     Dosage: DOSE: UNKNOWN
     Route: 042
     Dates: start: 20080101, end: 20100601
  2. DEXAMETHASONE [Suspect]
     Indication: GLIOBLASTOMA MULTIFORME
     Route: 048
     Dates: start: 20080101
  3. AMLODIPINE [Concomitant]
     Indication: HYPERTENSION
     Route: 048
  4. KEPPRA [Concomitant]
     Indication: CONVULSION PROPHYLAXIS
     Route: 048
  5. METOPROLOL [Concomitant]
     Indication: HYPERTENSION
     Route: 048
  6. MORPHINE [Concomitant]
     Indication: PAIN
     Route: 048
     Dates: end: 20100927
  7. OMEPRAZOLE [Concomitant]
     Indication: ILL-DEFINED DISORDER
     Route: 048
  8. ONDANSETRON [Concomitant]
     Indication: NAUSEA
     Dosage: FREQUENCY: PRN
  9. SENNA [Concomitant]
  10. BACTRIM [Concomitant]
     Dosage: DOSE: DOUBLE STRENGTH 1 TAB Q 12 HOURS

REACTIONS (1)
  - ULCER [None]
